FAERS Safety Report 4717866-8 (Version None)
Quarter: 2005Q3

REPORT INFORMATION
  Report Type: 
  Country: None (occurrence: None)
  Receive Date: 20050718
  Receipt Date: 20050718
  Transmission Date: 20060218
  Serious: Yes (Death)
  Sender: FDA-Public Use
  Company Number: None

PATIENT
  Age: 50 Year
  Sex: Male

DRUGS (2)
  1. FOSPHENYTOIN SODIUM [Suspect]
     Indication: CONVULSION
     Dosage: 100MG IV   Q8H
     Route: 042
     Dates: start: 20050408, end: 20050411
  2. FOSPHENYTOIN SODIUM [Suspect]
     Dosage: 500MG  IV X 1
     Route: 042
     Dates: start: 20050406, end: 20050406

REACTIONS (6)
  - ANOXIC ENCEPHALOPATHY [None]
  - ATRIOVENTRICULAR BLOCK COMPLETE [None]
  - ATRIOVENTRICULAR BLOCK SECOND DEGREE [None]
  - BLOOD ALBUMIN DECREASED [None]
  - CIRCULATORY COLLAPSE [None]
  - LOSS OF CONSCIOUSNESS [None]
